FAERS Safety Report 15173118 (Version 1)
Quarter: 2018Q3

REPORT INFORMATION
  Report Type: Spontaneous
  Country: CO (occurrence: CO)
  Receive Date: 20180720
  Receipt Date: 20180720
  Transmission Date: 20181010
  Serious: Yes (Other)
  Sender: FDA-Public Use
  Company Number: CO-ELI_LILLY_AND_COMPANY-CO201807008569

PATIENT
  Age: 49 Year
  Sex: Male
  Weight: 110 kg

DRUGS (3)
  1. EFFIENT [Suspect]
     Active Substance: PRASUGREL HYDROCHLORIDE
     Indication: ACUTE MYOCARDIAL INFARCTION
     Dosage: 10 MG, DAILY
     Route: 048
     Dates: start: 20180614, end: 20180629
  2. CLOPIDOGREL [Concomitant]
     Active Substance: CLOPIDOGREL BISULFATE
     Indication: ACUTE MYOCARDIAL INFARCTION
     Dosage: 75 MG, BID
     Route: 065
     Dates: end: 2018
  3. CLOPIDOGREL [Concomitant]
     Active Substance: CLOPIDOGREL BISULFATE
     Dosage: 75 MG, BID
     Route: 065
     Dates: start: 20180629

REACTIONS (4)
  - Asthenia [Recovered/Resolved]
  - Choking sensation [Recovered/Resolved]
  - Anxiety [Recovered/Resolved]
  - Feeling of despair [Recovered/Resolved]

NARRATIVE: CASE EVENT DATE: 20180614
